FAERS Safety Report 5180275-4 (Version None)
Quarter: 2006Q4

REPORT INFORMATION
  Report Type: 
  Country: None (occurrence: None)
  Receive Date: 20061219
  Receipt Date: 20060913
  Transmission Date: 20070319
  Serious: No
  Sender: FDA-Public Use
  Company Number: US-AMGEN-KDL193432

PATIENT
  Sex: Female

DRUGS (2)
  1. ENBREL [Suspect]
     Indication: RHEUMATOID ARTHRITIS
     Dates: start: 20040401
  2. ARAVA [Concomitant]
     Route: 048
     Dates: start: 20060701

REACTIONS (2)
  - BONE DISORDER [None]
  - TENDON DISORDER [None]
